FAERS Safety Report 7601105-4 (Version None)
Quarter: 2011Q3

REPORT INFORMATION
  Report Type: 
  Country: None (occurrence: None)
  Receive Date: 20110711
  Receipt Date: 20110620
  Transmission Date: 20111222
  Serious: Yes (Congenital Anomaly)
  Sender: FDA-Public Use
  Company Number: US-GLAXOSMITHKLINE-A0935510A

PATIENT
  Sex: Male

DRUGS (3)
  1. VISTARIL [Concomitant]
     Indication: ANXIETY
     Dates: start: 20070201
  2. ZOLOFT [Concomitant]
     Route: 064
     Dates: start: 20070101
  3. PAXIL [Suspect]
     Indication: ANXIETY
     Route: 064
     Dates: start: 20070201, end: 20071001

REACTIONS (4)
  - MATERNAL EXPOSURE DURING PREGNANCY [None]
  - HEART DISEASE CONGENITAL [None]
  - KIDNEY MALFORMATION [None]
  - PULMONARY MALFORMATION [None]
